FAERS Safety Report 4984670-5 (Version None)
Quarter: 2006Q2

REPORT INFORMATION
  Report Type: 
  Country: None (occurrence: None)
  Receive Date: 20060427
  Receipt Date: 20060216
  Transmission Date: 20061013
  Serious: Yes (Death)
  Sender: FDA-Public Use
  Company Number: US-MERCK-0602USA04633

PATIENT
  Sex: Male
  Weight: 103 kg

DRUGS (7)
  1. VIOXX [Suspect]
     Indication: RHEUMATOID ARTHRITIS
     Route: 048
     Dates: start: 20020101, end: 20040401
  2. VIOXX [Suspect]
     Route: 048
     Dates: end: 20020701
  3. VICODIN [Concomitant]
     Route: 065
  4. PREDNISONE [Concomitant]
     Route: 065
  5. EVISTA [Concomitant]
     Route: 065
  6. CALCIUM (UNSPECIFIED) [Concomitant]
     Route: 065
  7. VITAMINS (UNSPECIFIED) [Concomitant]
     Route: 065

REACTIONS (13)
  - ABDOMINAL DISCOMFORT [None]
  - ADVERSE EVENT [None]
  - ANXIETY [None]
  - CARDIOVASCULAR DISORDER [None]
  - CUSHINGOID [None]
  - DEATH [None]
  - FATIGUE [None]
  - FLATULENCE [None]
  - HYPERLIPIDAEMIA [None]
  - INCREASED TENDENCY TO BRUISE [None]
  - JOINT SWELLING [None]
  - LOW DENSITY LIPOPROTEIN INCREASED [None]
  - PAIN [None]
